FAERS Safety Report 13843697 (Version 3)
Quarter: 2020Q4

REPORT INFORMATION
  Report Type: Other
  Country: JP (occurrence: JP)
  Receive Date: 20170808
  Receipt Date: 20201006
  Transmission Date: 20210113
  Serious: Yes (Hospitalization)
  Sender: FDA-Public Use
  Company Number: JP-ROCHE-1969196

PATIENT
  Age: 38 Year
  Sex: Female

DRUGS (2)
  1. OXYTOCIN. [Concomitant]
     Active Substance: OXYTOCIN
     Indication: LABOUR INDUCTION
  2. ACTEMRA [Suspect]
     Active Substance: TOCILIZUMAB
     Indication: CASTLEMAN^S DISEASE
     Route: 041
     Dates: start: 200408

REACTIONS (3)
  - Female reproductive tract disorder [Unknown]
  - Maternal exposure during pregnancy [Unknown]
  - Premature rupture of membranes [Unknown]
